FAERS Safety Report 22587236 (Version 2)
Quarter: 2023Q2

REPORT INFORMATION
  Report Type: Report from Study
  Country: US (occurrence: US)
  Receive Date: 20230612
  Receipt Date: 20230615
  Transmission Date: 20230722
  Serious: No
  Sender: FDA-Public Use
  Company Number: US-002147023-NVSC2023US128774

PATIENT
  Sex: Male

DRUGS (4)
  1. LISINOPRIL [Suspect]
     Active Substance: LISINOPRIL
     Indication: Psoriasis
     Dosage: UNK
     Route: 065
  2. COSENTYX [Suspect]
     Active Substance: SECUKINUMAB
     Indication: Psoriasis
     Dosage: UNK
     Route: 065
     Dates: start: 2018
  3. COSENTYX [Suspect]
     Active Substance: SECUKINUMAB
     Dosage: UNK, (RESTARTED IN 2021 AND STOPPED IN 2022)
     Route: 065
  4. COSENTYX [Suspect]
     Active Substance: SECUKINUMAB
     Dosage: UNK, (STARTED IN 2023 IN MID OF APRIL)
     Route: 065

REACTIONS (8)
  - Seborrhoeic keratosis [Unknown]
  - Haemangioma [Unknown]
  - Solar lentigo [Unknown]
  - Actinic keratosis [Unknown]
  - Product use issue [Unknown]
  - Product use in unapproved indication [Unknown]
  - Psoriasis [Unknown]
  - Drug ineffective [Unknown]
